FAERS Safety Report 19870881 (Version 1)
Quarter: 2021Q3

REPORT INFORMATION
  Report Type: Spontaneous
  Country: US (occurrence: US)
  Receive Date: 20210923
  Receipt Date: 20210923
  Transmission Date: 20211014
  Serious: No
  Sender: FDA-Public Use
  Company Number: US-SA-2021SA309169

PATIENT
  Age: 43 Year
  Sex: Female

DRUGS (1)
  1. DUPIXENT [Suspect]
     Active Substance: DUPILUMAB
     Indication: UNEVALUABLE EVENT
     Dosage: 300 MG, QOW
     Route: 058
     Dates: start: 20210126, end: 202105

REACTIONS (4)
  - Product use in unapproved indication [Unknown]
  - Condition aggravated [Unknown]
  - Pruritus [Unknown]
  - Discomfort [Unknown]

NARRATIVE: CASE EVENT DATE: 2021
